FAERS Safety Report 8243527-7 (Version None)
Quarter: 2012Q1

REPORT INFORMATION
  Report Type: 
  Country: None (occurrence: None)
  Receive Date: 20120315
  Receipt Date: 20100223
  Transmission Date: 20120608
  Serious: Yes (Other)
  Sender: FDA-Public Use
  Company Number: PHEH2010US02732

PATIENT
  Age: 30 Year
  Sex: Female

DRUGS (1)
  1. FANAPT [Suspect]
     Indication: SCHIZOPHRENIA
     Dosage: UNK : 6 MG, BID
     Dates: start: 20100202, end: 20100219

REACTIONS (1)
  - PSYCHOTIC DISORDER [None]
